FAERS Safety Report 10160133 (Version 1)
Quarter: 2014Q2

REPORT INFORMATION
  Report Type: Spontaneous
  Country: CA (occurrence: CA)
  Receive Date: 20140508
  Receipt Date: 20140508
  Transmission Date: 20141212
  Serious: Yes (Life-Threatening, Hospitalization)
  Sender: FDA-Public Use
  Company Number: CA-MYLANLABS-2014S1009983

PATIENT
  Age: 20 Year
  Sex: Female
  Weight: 50 kg

DRUGS (6)
  1. PARACETAMOL [Suspect]
     Indication: OVERDOSE
     Dosage: 1200 MG/KG
     Route: 048
  2. IBUPROFEN [Suspect]
     Indication: OVERDOSE
     Dosage: UP TO 32 G
     Route: 048
  3. IBUPROFEN [Suspect]
     Indication: OFF LABEL USE
     Dosage: UP TO 32 G
     Route: 048
  4. PSEUDOEPHEDRINE [Suspect]
     Indication: OVERDOSE
     Dosage: 2.2 G
     Route: 048
  5. CHLORPHENAMINE [Suspect]
     Indication: OVERDOSE
     Dosage: 144 MG
     Route: 048
  6. CITALOPRAM [Concomitant]
     Route: 065

REACTIONS (2)
  - Overdose [Recovered/Resolved]
  - Mitochondrial toxicity [Recovered/Resolved]
